FAERS Safety Report 6476194-3 (Version None)
Quarter: 2009Q4

REPORT INFORMATION
  Report Type: 
  Country: None (occurrence: None)
  Receive Date: 20091206
  Receipt Date: 20090805
  Transmission Date: 20100525
  Serious: No
  Sender: FDA-Public Use
  Company Number: US-ALLERGAN-0910868US

PATIENT
  Age: 75 Year
  Sex: Female

DRUGS (5)
  1. ACULAR LS [Suspect]
     Indication: EYE DISORDER
     Dosage: UNK, BID
     Route: 047
     Dates: start: 20090206
  2. ELESTAT [Suspect]
     Indication: EYE DISORDER
     Route: 047
     Dates: start: 20090715
  3. SYSTANE [Concomitant]
     Indication: DRY EYE
     Dosage: UNK, TID
     Route: 047
  4. PATADAY [Concomitant]
     Dosage: UNK, QD
  5. REFRESH P.M. [Concomitant]

REACTIONS (1)
  - HEADACHE [None]
